FAERS Safety Report 21988898 (Version 1)
Quarter: 2023Q1

REPORT INFORMATION
  Report Type: Report from Study
  Country: BR (occurrence: BR)
  Receive Date: 20230214
  Receipt Date: 20230214
  Transmission Date: 20230418
  Serious: Yes (Other)
  Sender: FDA-Public Use
  Company Number: BR-002147023-NVSC2023BR032421

PATIENT
  Sex: Female

DRUGS (1)
  1. DIOVAN [Suspect]
     Active Substance: VALSARTAN
     Indication: Hypertension
     Dosage: UNK (STRENGTH: 80/12 AND HALF)
     Route: 065

REACTIONS (3)
  - Neoplasm malignant [Unknown]
  - Myocardial infarction [Unknown]
  - Wrong technique in product usage process [Unknown]
